FAERS Safety Report 6130483-0 (Version None)
Quarter: 2009Q1

REPORT INFORMATION
  Report Type: 
  Country: None (occurrence: None)
  Receive Date: 20090324
  Receipt Date: 20081110
  Transmission Date: 20090719
  Serious: Yes (Other)
  Sender: FDA-Public Use
  Company Number: AT-GENENTECH-271949

PATIENT
  Age: 63 Year
  Sex: Female

DRUGS (3)
  1. MABTHERA [Suspect]
     Indication: NO THERAPEUTIC RESPONSE
     Dosage: 100 MG, UNK
     Route: 042
     Dates: start: 20020601, end: 20080701
  2. ZEVALIN [Concomitant]
     Indication: DRUG USE FOR UNKNOWN INDICATION
     Dosage: 1.6 MG, UNK
     Dates: start: 20041101, end: 20041101
  3. CHEMOTHERAPY (UNK INGREDIENTS) [Concomitant]
     Indication: B-CELL LYMPHOMA

REACTIONS (2)
  - LYMPHOMA [None]
  - RENAL FAILURE [None]
